FAERS Safety Report 19410650 (Version 3)
Quarter: 2021Q3

REPORT INFORMATION
  Report Type: Spontaneous
  Country: US (occurrence: US)
  Receive Date: 20210614
  Receipt Date: 20210708
  Transmission Date: 20211014
  Serious: No
  Sender: FDA-Public Use
  Company Number: NVSC2021US128733

PATIENT
  Sex: Female

DRUGS (1)
  1. XIIDRA [Suspect]
     Active Substance: LIFITEGRAST
     Indication: PRODUCT USED FOR UNKNOWN INDICATION
     Route: 065

REACTIONS (6)
  - Eye allergy [Unknown]
  - Eye irritation [Recovering/Resolving]
  - Vision blurred [Unknown]
  - Ocular discomfort [Unknown]
  - Eye pain [Unknown]
  - Dysgeusia [Unknown]
